FAERS Safety Report 7643088-7 (Version None)
Quarter: 2011Q3

REPORT INFORMATION
  Report Type: 
  Country: None (occurrence: None)
  Receive Date: 20110728
  Receipt Date: 20110719
  Transmission Date: 20111222
  Serious: Yes (Hospitalization, Other)
  Sender: FDA-Public Use
  Company Number: US-ASTRAZENECA-2010SE32523

PATIENT
  Age: 85 Year
  Sex: Female

DRUGS (1)
  1. ATACAND [Suspect]
     Route: 048

REACTIONS (4)
  - FEMUR FRACTURE [None]
  - LIMB SALVAGE THERAPY [None]
  - DEVICE BREAKAGE [None]
  - LIMB OPERATION [None]
